FAERS Safety Report 5092260-1 (Version None)
Quarter: 2006Q3

REPORT INFORMATION
  Report Type: 
  Country: None (occurrence: None)
  Receive Date: 20060825
  Receipt Date: 20060823
  Transmission Date: 20061208
  Serious: Yes (Hospitalization)
  Sender: FDA-Public Use
  Company Number: 06-0095TG

PATIENT
  Age: 70 Year
  Sex: Male

DRUGS (2)
  1. TRIGLIDE [Suspect]
     Dosage: PO
     Route: 048
  2. LOPID OR ZOCOR [Concomitant]

REACTIONS (5)
  - ANAEMIA [None]
  - GASTROINTESTINAL HAEMORRHAGE [None]
  - INTERNATIONAL NORMALISED RATIO INCREASED [None]
  - RENAL FAILURE [None]
  - RHABDOMYOLYSIS [None]
